FAERS Safety Report 8048492-3 (Version None)
Quarter: 2012Q1

REPORT INFORMATION
  Report Type: 
  Country: None (occurrence: None)
  Receive Date: 20120117
  Receipt Date: 20120109
  Transmission Date: 20120608
  Serious: No
  Sender: FDA-Public Use
  Company Number: US-PFIZER INC-2012006856

PATIENT
  Sex: Female
  Weight: 63.492 kg

DRUGS (4)
  1. SYNTHROID [Concomitant]
     Dosage: UNK
  2. PENICILLIN G PROCAINE [Suspect]
     Dosage: UNK
  3. URSODIOL [Concomitant]
     Dosage: UNK
  4. CYTOMEL [Concomitant]
     Dosage: UNK

REACTIONS (1)
  - HYPERSENSITIVITY [None]
